FAERS Safety Report 24227533 (Version 1)
Quarter: 2024Q3

REPORT INFORMATION
  Report Type: Spontaneous
  Country: US (occurrence: US)
  Receive Date: 20240820
  Receipt Date: 20240820
  Transmission Date: 20241017
  Serious: No
  Sender: SANOFI AVENTIS
  Company Number: US-SA-SAC20240814000240

PATIENT
  Sex: Female

DRUGS (1)
  1. DUPIXENT [Suspect]
     Active Substance: DUPILUMAB
     Indication: Body mass index
     Dosage: 300 MG, QOW
     Route: 058

REACTIONS (6)
  - Dyspnoea [Unknown]
  - Fatigue [Unknown]
  - Depressed mood [Unknown]
  - Middle insomnia [Unknown]
  - Disturbance in attention [Unknown]
  - Product use in unapproved indication [Unknown]
